FAERS Safety Report 9817700 (Version 1)
Quarter: 2013Q4

REPORT INFORMATION
  Report Type: Spontaneous
  Country: US (occurrence: None)
  Receive Date: 20131223
  Receipt Date: 20131223
  Transmission Date: 20140711
  Serious: No
  Sender: FDA-Public Use
  Company Number: 219305

PATIENT
  Sex: Male

DRUGS (1)
  1. PICATO (0.015 %, GEL) [Suspect]
     Indication: ACTINIC KERATOSIS
     Dates: start: 20120928, end: 20120930

REACTIONS (6)
  - Eye irritation [None]
  - Burning sensation [None]
  - Application site erythema [None]
  - Application site exfoliation [None]
  - Accidental exposure to product [None]
  - Drug administered at inappropriate site [None]
